FAERS Safety Report 8453807-8 (Version None)
Quarter: 2012Q2

REPORT INFORMATION
  Report Type: 
  Country: None (occurrence: None)
  Receive Date: 20120620
  Receipt Date: 20120607
  Transmission Date: 20120825
  Serious: No
  Sender: FDA-Public Use
  Company Number: US-ASTRAZENECA-2012SE38275

PATIENT
  Age: 98 Year
  Sex: Female
  Weight: 90.7 kg

DRUGS (16)
  1. SEROQUEL [Suspect]
     Indication: ARTHRITIS
     Route: 048
     Dates: start: 20120401, end: 20120501
  2. BACLOFEN [Concomitant]
     Indication: MUSCLE SPASMS
  3. DETROL LA [Concomitant]
  4. XANAX [Concomitant]
  5. NEXIUM [Suspect]
     Route: 048
  6. SEROQUEL [Suspect]
     Indication: FIBROMYALGIA
     Route: 048
     Dates: start: 20120401, end: 20120501
  7. BUTALBITAL [Concomitant]
  8. FLOUXETINE [Concomitant]
  9. ESTRADIOL [Concomitant]
     Indication: HORMONE THERAPY
  10. SYMBICORT [Suspect]
     Dosage: 160/4.5 MCG, UNKNOWN
     Route: 055
  11. SEROQUEL [Suspect]
     Indication: SLEEP DISORDER
     Route: 048
     Dates: start: 20120401, end: 20120501
  12. LORTAB [Concomitant]
  13. CADUET [Concomitant]
  14. TARZADONE [Concomitant]
  15. PULMICORT FLEXHALER [Suspect]
     Route: 055
  16. SEROQUEL [Suspect]
     Indication: MYALGIA
     Route: 048
     Dates: start: 20120401, end: 20120501

REACTIONS (8)
  - THERAPEUTIC RESPONSE UNEXPECTED [None]
  - INTENTIONAL DRUG MISUSE [None]
  - HYPERHIDROSIS [None]
  - FEELING ABNORMAL [None]
  - RASH [None]
  - HOT FLUSH [None]
  - COLD SWEAT [None]
  - PRESYNCOPE [None]
